FAERS Safety Report 4491288-X (Version None)
Quarter: 2004Q4

REPORT INFORMATION
  Report Type: 
  Country: None (occurrence: None)
  Receive Date: 20041101
  Receipt Date: 20041020
  Transmission Date: 20050328
  Serious: Yes (Death)
  Sender: FDA-Public Use
  Company Number: B0348795A

PATIENT
  Sex: Male

DRUGS (3)
  1. HYCAMTIN [Suspect]
     Dosage: SEE DOSAGE TEXT  INTRAVENOUS
     Route: 042
  2. CISPLATIN [Suspect]
     Dosage: SEE DOSAGE TEXT INTRAVENOUS
     Route: 042
  3. METHYLPREDNISOLONE INFUSION (METHYLPREDNISOLONE) [Suspect]
     Dosage: SEE DOSAGE TEXT INTRAVENOUS
     Route: 042

REACTIONS (4)
  - GASTROINTESTINAL HAEMORRHAGE [None]
  - LYMPHOMA [None]
  - MULTI-ORGAN FAILURE [None]
  - TUMOUR NECROSIS [None]
